FAERS Safety Report 23576991 (Version 1)
Quarter: 2024Q1

REPORT INFORMATION
  Report Type: Spontaneous
  Country: US (occurrence: None)
  Receive Date: 20240228
  Receipt Date: 20240228
  Transmission Date: 20240410
  Serious: Yes (Hospitalization)
  Sender: FDA-Public Use
  Company Number: None

PATIENT
  Sex: Female

DRUGS (6)
  1. LENALIDOMIDE [Suspect]
     Active Substance: LENALIDOMIDE
     Indication: Plasma cell myeloma in remission
     Dosage: OTHER QUANTITY : TAKE 1 CAPSULE;?FREQUENCY : DAILY;?
     Route: 048
     Dates: start: 20230224
  2. ACYCLOVIR [Concomitant]
     Active Substance: ACYCLOVIR
  3. CALCIUM/D [Concomitant]
  4. ELIQUIS [Concomitant]
     Active Substance: APIXABAN
  5. POTASSIUM POW CHLORIDE [Concomitant]
  6. VITAMIN D-1000 [Concomitant]

REACTIONS (2)
  - Surgery [None]
  - Therapy interrupted [None]
